FAERS Safety Report 15095053 (Version 2)
Quarter: 2018Q3

REPORT INFORMATION
  Report Type: Spontaneous
  Country: US (occurrence: US)
  Receive Date: 20180702
  Receipt Date: 20180705
  Transmission Date: 20181010
  Serious: No
  Sender: FDA-Public Use
  Company Number: US-B.I. PHARMACEUTICALS,INC./RIDGEFIELD-2018-BI-032802

PATIENT
  Sex: Male

DRUGS (1)
  1. SPIRIVA [Suspect]
     Active Substance: TIOTROPIUM BROMIDE MONOHYDRATE
     Indication: CHRONIC OBSTRUCTIVE PULMONARY DISEASE
     Dosage: ONCE DAILY; STRENGTH: 18 MCG; FORM: CAPSULE? ADMIN? NO ?ACTION(S) TAKEN WITH PRODUCT: DRUG WITHDRAWN
     Route: 065
     Dates: start: 201108, end: 20180615

REACTIONS (2)
  - Extra dose administered [Unknown]
  - Product physical issue [Unknown]
